FAERS Safety Report 4801746-3 (Version None)
Quarter: 2005Q4

REPORT INFORMATION
  Report Type: 
  Country: None (occurrence: None)
  Receive Date: 20051018
  Receipt Date: 20051010
  Transmission Date: 20060501
  Serious: Yes (Other)
  Sender: FDA-Public Use
  Company Number: PT-JNJFOC-20050806727

PATIENT
  Age: 39 Year
  Sex: Female

DRUGS (5)
  1. REMICADE [Suspect]
     Route: 042
  2. COLCHICINE [Concomitant]
     Route: 048
  3. OMEPRAZOLE [Concomitant]
     Route: 065
  4. AZATHIOPRINE [Concomitant]
     Route: 065
  5. DEFLAZACORT [Concomitant]
     Route: 048

REACTIONS (1)
  - MYOSITIS [None]
